FAERS Safety Report 4751213-0 (Version None)
Quarter: 2005Q3

REPORT INFORMATION
  Report Type: 
  Country: None (occurrence: None)
  Receive Date: 20050823
  Receipt Date: 20050823
  Transmission Date: 20060218
  Serious: Yes (Life-Threatening, Hospitalization, Other)
  Sender: FDA-Public Use
  Company Number: None

PATIENT
  Age: 29 Year
  Sex: Female
  Weight: 77.1115 kg

DRUGS (2)
  1. SEROQUEL [Suspect]
     Indication: AFFECTIVE DISORDER
     Dosage: 300 MG, NIGHT, ORAL
     Route: 048
     Dates: start: 20000101, end: 20050101
  2. DEPAKOTE [Suspect]
     Indication: DEPRESSION
     Dosage: 250 MG , MOM , ORAL
     Route: 048

REACTIONS (3)
  - AGGRESSION [None]
  - HALLUCINATION [None]
  - PHYSICAL ASSAULT [None]
